FAERS Safety Report 7481774-2 (Version None)
Quarter: 2011Q2

REPORT INFORMATION
  Report Type: 
  Country: None (occurrence: None)
  Receive Date: 20110506
  Receipt Date: 20110421
  Transmission Date: 20111010
  Serious: Yes (Other)
  Sender: FDA-Public Use
  Company Number: 2011PL000060

PATIENT
  Age: 54 Year
  Sex: Male

DRUGS (4)
  1. NASONEX [Concomitant]
  2. VICODIN [Concomitant]
  3. PROPECIA [Concomitant]
  4. PROLEUKIN [Suspect]
     Indication: RENAL CELL CARCINOMA
     Dosage: 45 X10^6 IU
     Dates: start: 20110328, end: 20110402

REACTIONS (2)
  - HYPOTENSION [None]
  - RETINAL HAEMORRHAGE [None]
